FAERS Safety Report 8448969-2 (Version None)
Quarter: 2012Q2

REPORT INFORMATION
  Report Type: 
  Country: None (occurrence: None)
  Receive Date: 20120619
  Receipt Date: 20120612
  Transmission Date: 20120825
  Serious: Yes (Other)
  Sender: FDA-Public Use
  Company Number: US-AMGEN-USASP2011023763

PATIENT
  Age: 50 Year
  Sex: Female
  Weight: 53.5 kg

DRUGS (5)
  1. ENBREL [Suspect]
     Dosage: 50 MG, QWK
     Dates: start: 20100101
  2. MULTI-VITAMINS [Concomitant]
     Dosage: UNK
  3. HERBALS NOS W/VITAMINS NOS [Concomitant]
     Dosage: UNK
  4. CALCIUM + VITAMIN D [Concomitant]
     Dosage: UNK
  5. ENBREL [Suspect]
     Indication: RHEUMATOID ARTHRITIS
     Dosage: 50 MG, QWK
     Route: 058
     Dates: start: 20090101, end: 20110416

REACTIONS (16)
  - CELLULITIS [None]
  - DRUG ERUPTION [None]
  - SEBORRHOEIC DERMATITIS [None]
  - SKIN HYPERPIGMENTATION [None]
  - POLYARTHRITIS [None]
  - ERYTHEMA MULTIFORME [None]
  - HYPERSENSITIVITY [None]
  - PARAPSORIASIS [None]
  - RHEUMATOID ARTHRITIS [None]
  - STEVENS-JOHNSON SYNDROME [None]
  - INSOMNIA [None]
  - DERMATITIS CONTACT [None]
  - IMPETIGO [None]
  - ECZEMA [None]
  - PSORIATIC ARTHROPATHY [None]
  - TEMPOROMANDIBULAR JOINT SYNDROME [None]
